FAERS Safety Report 14908787 (Version 3)
Quarter: 2018Q4

REPORT INFORMATION
  Report Type: Spontaneous
  Country: US (occurrence: US)
  Receive Date: 20180517
  Receipt Date: 20181130
  Transmission Date: 20190204
  Serious: Yes (Death, Hospitalization)
  Sender: FDA-Public Use
  Company Number: US-SA-2018SA136288

PATIENT
  Age: 42 Year
  Sex: Female

DRUGS (5)
  1. TYLENOL [Concomitant]
     Active Substance: ACETAMINOPHEN
     Indication: PREMEDICATION
  2. ZYRTEC [Concomitant]
     Active Substance: CETIRIZINE HYDROCHLORIDE
     Indication: PREMEDICATION
  3. LEMTRADA [Suspect]
     Active Substance: ALEMTUZUMAB
     Dosage: UNK UNK,UNK
     Route: 041
     Dates: start: 20180430, end: 20180504
  4. BENADRYL [Concomitant]
     Active Substance: DIPHENHYDRAMINE HYDROCHLORIDE
     Indication: PREMEDICATION
  5. ZANTAC [Concomitant]
     Active Substance: RANITIDINE HYDROCHLORIDE
     Indication: PREMEDICATION

REACTIONS (12)
  - Back pain [Unknown]
  - Acute kidney injury [Unknown]
  - Chromaturia [Unknown]
  - Arthralgia [Unknown]
  - Swelling [Recovering/Resolving]
  - Joint swelling [Recovering/Resolving]
  - Peripheral swelling [Unknown]
  - Streptococcal bacteraemia [Fatal]
  - Erythema [Unknown]
  - Oedema peripheral [Unknown]
  - Cytokine abnormal [Unknown]
  - Dehydration [Unknown]

NARRATIVE: CASE EVENT DATE: 20180507
